FAERS Safety Report 8088964-9 (Version None)
Quarter: 2012Q1

REPORT INFORMATION
  Report Type: 
  Country: None (occurrence: None)
  Receive Date: 20120128
  Receipt Date: 20110624
  Transmission Date: 20120608
  Serious: No
  Sender: FDA-Public Use
  Company Number: US-ABBOTT-11P-163-0834354-00

PATIENT
  Age: 26 Year
  Sex: Female

DRUGS (4)
  1. HUMIRA [Suspect]
     Indication: PSORIATIC ARTHROPATHY
     Route: 058
     Dates: start: 20110521
  2. OLUX E [Concomitant]
     Indication: PSORIASIS
  3. HYDROCODONE BITARTRATE [Concomitant]
     Indication: PRODUCT USED FOR UNKNOWN INDICATION
     Dosage: ONCE DAILY AS REQUIRED
  4. BIRTH CONTROL [Concomitant]
     Indication: PRODUCT USED FOR UNKNOWN INDICATION

REACTIONS (5)
  - VISION BLURRED [None]
  - FEELING ABNORMAL [None]
  - ASTHENIA [None]
  - DIZZINESS [None]
  - ABASIA [None]
